FAERS Safety Report 7970840-0 (Version None)
Quarter: 2011Q4

REPORT INFORMATION
  Report Type: 
  Country: None (occurrence: None)
  Receive Date: 20111212
  Receipt Date: 20111206
  Transmission Date: 20120403
  Serious: Yes (Other)
  Sender: FDA-Public Use
  Company Number: US-GLAXOSMITHKLINE-A0956918A

PATIENT
  Sex: Male
  Weight: 68.2 kg

DRUGS (6)
  1. OMEPRAZOLE [Concomitant]
  2. ADVAIR DISKUS 100/50 [Suspect]
     Indication: ASTHMA
     Dosage: 1PUFF TWICE PER DAY
     Route: 055
     Dates: start: 20030101, end: 20110801
  3. FLOVENT [Suspect]
     Indication: ASTHMA
     Dosage: 1PUFF TWICE PER DAY
     Route: 055
     Dates: start: 20111026
  4. VENTOLIN [Concomitant]
  5. SPIRIVA [Concomitant]
  6. ASPIRIN [Concomitant]

REACTIONS (9)
  - BORDERLINE GLAUCOMA [None]
  - DEVICE MALFUNCTION [None]
  - DIZZINESS [None]
  - NERVOUSNESS [None]
  - DYSPNOEA [None]
  - ASTHMA [None]
  - HEART RATE INCREASED [None]
  - CATARACT [None]
  - DYSPHONIA [None]
